FAERS Safety Report 14787154 (Version 1)
Quarter: 2018Q2

REPORT INFORMATION
  Report Type: Spontaneous
  Country: JP (occurrence: JP)
  Receive Date: 20180421
  Receipt Date: 20180421
  Transmission Date: 20180711
  Serious: Yes (Disabling)
  Sender: FDA-Public Use
  Company Number: JP-ROCHE-2105826

PATIENT
  Age: 51 Year
  Sex: Female
  Weight: 45 kg

DRUGS (5)
  1. XELODA [Suspect]
     Active Substance: CAPECITABINE
     Indication: RECTAL CANCER
     Dosage: 2 WEEKS ADMINISTRATION FOLLOWED BY 1 WEEK REST
     Route: 048
     Dates: start: 20180111
  2. RESTAMIN [Concomitant]
     Active Substance: DIPHENHYDRAMINE
     Dosage: DOSAGE IS UNCERTAIN.
     Route: 065
     Dates: start: 20180111
  3. NAUZELIN [Concomitant]
     Active Substance: DOMPERIDONE
     Dosage: DOSAGE IS UNCERTAIN.
     Route: 048
     Dates: start: 20180115
  4. AVASTIN [Suspect]
     Active Substance: BEVACIZUMAB
     Indication: COLON CANCER
     Route: 041
     Dates: start: 20180111, end: 20180222
  5. NASEA [Concomitant]
     Active Substance: RAMOSETRON HYDROCHLORIDE
     Dosage: DOSAGE IS UNCERTAIN.
     Route: 048
     Dates: start: 20180112

REACTIONS (1)
  - Anastomotic fistula [Not Recovered/Not Resolved]

NARRATIVE: CASE EVENT DATE: 20180312
